FAERS Safety Report 6941038-X (Version None)
Quarter: 2010Q3

REPORT INFORMATION
  Report Type: 
  Country: None (occurrence: None)
  Receive Date: 20100825
  Receipt Date: 20100824
  Transmission Date: 20110219
  Serious: Yes (Other)
  Sender: FDA-Public Use
  Company Number: D0068679A

PATIENT
  Sex: Female

DRUGS (2)
  1. AUGMENTIN '125' [Suspect]
     Dosage: 1000MG TWICE PER DAY
     Route: 048
     Dates: start: 20100819, end: 20100823
  2. UNSPECIFIED MEDICATION [Concomitant]
     Route: 065

REACTIONS (3)
  - EPILEPSY [None]
  - MONOPLEGIA [None]
  - PAIN [None]
